FAERS Safety Report 10026412 (Version 2)
Quarter: 2014Q2

REPORT INFORMATION
  Report Type: Spontaneous
  Country: US (occurrence: US)
  Receive Date: 20140321
  Receipt Date: 20140415
  Transmission Date: 20141212
  Serious: No
  Sender: FDA-Public Use
  Company Number: US-009507513-1403USA008079

PATIENT
  Sex: Female
  Weight: 52.61 kg

DRUGS (1)
  1. IMPLANON [Suspect]
     Dosage: 1 ROD, THREE YEARS
     Route: 059
     Dates: start: 20120515

REACTIONS (2)
  - Device breakage [Unknown]
  - No adverse event [Unknown]
